FAERS Safety Report 18412795 (Version 5)
Quarter: 2020Q4

REPORT INFORMATION
  Report Type: Report from Study
  Country: CA (occurrence: CA)
  Receive Date: 20201021
  Receipt Date: 20201224
  Transmission Date: 20210114
  Serious: Yes (Disabling, Other)
  Sender: FDA-Public Use
  Company Number: CA-BAUSCH-BL-2020-029163

PATIENT
  Age: 37 Year
  Sex: Male

DRUGS (2)
  1. SILIQ [Suspect]
     Active Substance: BRODALUMAB
     Indication: PSORIASIS
     Dosage: 210MG/ 1.5 ML, AT WEEK 0, 1 AND 2
     Route: 058
     Dates: start: 20201002, end: 20201016
  2. SILIQ [Suspect]
     Active Substance: BRODALUMAB
     Dosage: 210MG/ 1.5 ML
     Route: 058
     Dates: start: 20201112

REACTIONS (17)
  - Fatigue [Recovered/Resolved]
  - Feeling abnormal [Unknown]
  - Throat irritation [Not Recovered/Not Resolved]
  - Pain in extremity [Recovering/Resolving]
  - Peripheral swelling [Not Recovered/Not Resolved]
  - Gout [Unknown]
  - Inflammation [Recovering/Resolving]
  - Injection site pain [Not Recovered/Not Resolved]
  - Arthralgia [Not Recovered/Not Resolved]
  - Gait inability [Unknown]
  - Injection site erythema [Recovered/Resolved]
  - Psoriatic arthropathy [Not Recovered/Not Resolved]
  - Cellulitis [Recovering/Resolving]
  - Headache [Not Recovered/Not Resolved]
  - Injection site mass [Not Recovered/Not Resolved]
  - Sinus congestion [Unknown]
  - Nasopharyngitis [Unknown]

NARRATIVE: CASE EVENT DATE: 2020
